FAERS Safety Report 5581613-0 (Version None)
Quarter: 2008Q1

REPORT INFORMATION
  Report Type: 
  Country: None (occurrence: None)
  Receive Date: 20080104
  Receipt Date: 20080104
  Transmission Date: 20080703
  Serious: Yes (Other)
  Sender: FDA-Public Use
  Company Number: A0701425A

PATIENT
  Age: 45 Year
  Sex: Female
  Weight: 65.9 kg

DRUGS (2)
  1. ALLI [Suspect]
     Dates: start: 20071207, end: 20080102
  2. BIRTH CONTROL [Suspect]
     Indication: DRUG USE FOR UNKNOWN INDICATION

REACTIONS (3)
  - DRUG INTERACTION [None]
  - MENSTRUAL DISORDER [None]
  - VAGINAL HAEMORRHAGE [None]
